FAERS Safety Report 13897370 (Version 1)
Quarter: 2017Q3

REPORT INFORMATION
  Report Type: Spontaneous
  Country: CN (occurrence: CN)
  Receive Date: 20170823
  Receipt Date: 20170823
  Transmission Date: 20171127
  Serious: Yes (Hospitalization)
  Sender: FDA-Public Use
  Company Number: CN-MYLANLABS-2017M1051835

PATIENT

DRUGS (2)
  1. QUETIAPINE. [Suspect]
     Active Substance: QUETIAPINE
     Dosage: 50MG
     Route: 048
  2. QUETIAPINE. [Suspect]
     Active Substance: QUETIAPINE
     Indication: BIPOLAR II DISORDER
     Dosage: IN NIGHT
     Route: 048

REACTIONS (4)
  - Hypotension [Recovering/Resolving]
  - Heart rate decreased [Recovering/Resolving]
  - Syncope [Recovered/Resolved]
  - Loss of consciousness [Recovered/Resolved]
